FAERS Safety Report 15729430 (Version 1)
Quarter: 2018Q4

REPORT INFORMATION
  Report Type: Spontaneous
  Country: CO (occurrence: CO)
  Receive Date: 20181217
  Receipt Date: 20181217
  Transmission Date: 20190205
  Serious: Yes (Other)
  Sender: FDA-Public Use
  Company Number: CO-PFIZER INC-2018511941

PATIENT
  Age: 65 Year
  Sex: Male

DRUGS (1)
  1. XANAX [Suspect]
     Active Substance: ALPRAZOLAM
     Dosage: UNK
     Dates: start: 1993

REACTIONS (4)
  - Myocardial infarction [Unknown]
  - Insomnia [Unknown]
  - Phobia [Unknown]
  - Panic attack [Unknown]

NARRATIVE: CASE EVENT DATE: 2014
